FAERS Safety Report 9372965 (Version 1)
Quarter: 2013Q2

REPORT INFORMATION
  Report Type: Spontaneous
  Country: US (occurrence: US)
  Receive Date: 20130627
  Receipt Date: 20130627
  Transmission Date: 20140414
  Serious: No
  Sender: FDA-Public Use
  Company Number: US-PFIZER INC-2013191165

PATIENT
  Age: 54 Year
  Sex: Female
  Weight: 118 kg

DRUGS (6)
  1. LYRICA [Suspect]
     Indication: HYPOAESTHESIA
     Dosage: 50MG THREE TIMES DAILY
     Route: 048
  2. METFORMIN [Concomitant]
     Indication: DIABETES MELLITUS
     Dosage: 500 MG, 4X/DAY
  3. DIOVAN (VALSARTAN) [Concomitant]
     Indication: HYPERTENSION
     Dosage: 350 MG, 1X/DAY
  4. TOPROL [Concomitant]
     Indication: MYOCARDIAL INFARCTION
     Dosage: UNK, 1X/DAY
  5. ASPIRIN [Concomitant]
     Indication: MYOCARDIAL INFARCTION
     Dosage: 325 MG, 1X/DAY
  6. ASPIRIN [Concomitant]
     Indication: ANTICOAGULANT THERAPY

REACTIONS (1)
  - Rash maculo-papular [Not Recovered/Not Resolved]
